FAERS Safety Report 7395509-5 (Version None)
Quarter: 2011Q2

REPORT INFORMATION
  Report Type: 
  Country: None (occurrence: None)
  Receive Date: 20110405
  Receipt Date: 20110331
  Transmission Date: 20111010
  Serious: Yes (Hospitalization)
  Sender: FDA-Public Use
  Company Number: IT-BAYER-2011-024900

PATIENT
  Sex: Male

DRUGS (1)
  1. CIPROXIN 500 MG FILM-COATED TABLETS [Suspect]
     Indication: GASTROENTERITIS
     Dosage: DAILY DOSE 1000 MG
     Route: 048
     Dates: start: 20110316, end: 20110317

REACTIONS (2)
  - ALLERGIC OEDEMA [None]
  - URTICARIA [None]
